FAERS Safety Report 5642059-X (Version None)
Quarter: 2008Q1

REPORT INFORMATION
  Report Type: 
  Country: None (occurrence: None)
  Receive Date: 20080227
  Receipt Date: 20080218
  Transmission Date: 20080703
  Serious: Yes (Hospitalization)
  Sender: FDA-Public Use
  Company Number: JP-PFIZER INC-2008015953

PATIENT
  Age: 69 Year
  Sex: Male
  Weight: 56.3 kg

DRUGS (2)
  1. AZULFIDINE EN-TABS [Suspect]
     Indication: ARTHRALGIA
     Dosage: DAILY DOSE:1GRAM
     Route: 048
     Dates: start: 20030901, end: 20050323
  2. SODIUM AUROTHIOMALATE [Suspect]
     Indication: RHEUMATOID ARTHRITIS

REACTIONS (4)
  - ACUTE LYMPHOCYTIC LEUKAEMIA [None]
  - HEPATIC FUNCTION ABNORMAL [None]
  - PANCYTOPENIA [None]
  - PYREXIA [None]
